FAERS Safety Report 24706976 (Version 1)
Quarter: 2024Q4

REPORT INFORMATION
  Report Type: Spontaneous
  Country: CN (occurrence: CN)
  Receive Date: 20241206
  Receipt Date: 20241206
  Transmission Date: 20250115
  Serious: Yes (Hospitalization, Other)
  Sender: PFIZER
  Company Number: CN-PFIZER INC-PV202400157130

PATIENT
  Age: 56 Year
  Sex: Female
  Weight: 74 kg

DRUGS (7)
  1. CYTARABINE [Suspect]
     Active Substance: CYTARABINE
     Indication: Acute myeloid leukaemia
     Dosage: 50 MG, 1X/DAY
     Route: 037
     Dates: start: 20241021, end: 20241021
  2. CYTARABINE [Suspect]
     Active Substance: CYTARABINE
     Indication: Chemotherapy
  3. CYTARABINE [Suspect]
     Active Substance: CYTARABINE
     Indication: Acute myeloid leukaemia
     Dosage: 1800 MG, 2X/DAY
     Route: 041
     Dates: start: 20241024, end: 20241026
  4. CYTARABINE [Suspect]
     Active Substance: CYTARABINE
     Indication: Chemotherapy
     Dosage: 1800 MG, 1X/DAY
     Route: 041
     Dates: start: 20241024, end: 20241024
  5. CYTARABINE [Suspect]
     Active Substance: CYTARABINE
     Dosage: 1800 MG, 1X/DAY
     Route: 041
     Dates: start: 20241024, end: 20241026
  6. VENETOCLAX [Concomitant]
     Active Substance: VENETOCLAX
     Indication: Acute myeloid leukaemia
     Dosage: 400 MG (D1-7)
     Dates: start: 20241024
  7. VENETOCLAX [Concomitant]
     Active Substance: VENETOCLAX
     Indication: Chemotherapy

REACTIONS (3)
  - Myelosuppression [Recovering/Resolving]
  - Gingivitis [Recovering/Resolving]
  - Infection [Recovering/Resolving]

NARRATIVE: CASE EVENT DATE: 20241101
